FAERS Safety Report 5868940-4 (Version None)
Quarter: 2008Q3

REPORT INFORMATION
  Report Type: 
  Country: None (occurrence: None)
  Receive Date: 20080828
  Receipt Date: 20080818
  Transmission Date: 20090109
  Serious: Yes (Other)
  Sender: FDA-Public Use
  Company Number: CHPA2008US13756

PATIENT
  Age: 46 Year
  Sex: Female

DRUGS (1)
  1. GAS-X EXTSTR CHEW TABS PEPPERMINT CREME (NCH)(SIMETHICONE) CHEWABLE TA [Suspect]
     Indication: FLATULENCE
     Dosage: 375 MG, ONCE/SINGLE, ORAL
     Route: 048
     Dates: start: 20080814, end: 20080814

REACTIONS (2)
  - DYSPNOEA [None]
  - INCORRECT DOSE ADMINISTERED [None]
